FAERS Safety Report 12278037 (Version 1)
Quarter: 2016Q2

REPORT INFORMATION
  Report Type: Spontaneous
  Country: DE (occurrence: DE)
  Receive Date: 20160418
  Receipt Date: 20160418
  Transmission Date: 20160815
  Serious: Yes (Other)
  Sender: FDA-Public Use
  Company Number: DE-MYLANLABS-2016M1015796

PATIENT

DRUGS (3)
  1. MERCAPTOPURINE. [Suspect]
     Active Substance: MERCAPTOPURINE
     Indication: AUTOIMMUNE HEPATITIS
     Dosage: 50 MG/DAY; LATER DOSE WAS INCREASED TO 100MG/DAY
     Route: 065
  2. PREDNISOLONE. [Concomitant]
     Active Substance: PREDNISOLONE
     Indication: AUTOIMMUNE HEPATITIS
     Dosage: 15 MG/DAY
     Route: 065
  3. MERCAPTOPURINE. [Suspect]
     Active Substance: MERCAPTOPURINE
     Dosage: 100 MG/DAY
     Route: 065

REACTIONS (4)
  - Pyrexia [Unknown]
  - Vomiting [Unknown]
  - Abdominal pain [Unknown]
  - White blood cell count decreased [Unknown]
